FAERS Safety Report 6843485-3 (Version None)
Quarter: 2010Q3

REPORT INFORMATION
  Report Type: 
  Country: None (occurrence: None)
  Receive Date: 20100709
  Receipt Date: 20100709
  Transmission Date: 20110219
  Serious: Yes (Life-Threatening)
  Sender: FDA-Public Use
  Company Number: None

PATIENT
  Sex: Male

DRUGS (1)
  1. LEVOTHYROXINE SODIUM [Suspect]

REACTIONS (2)
  - DRUG LEVEL BELOW THERAPEUTIC [None]
  - PRODUCT SUBSTITUTION ISSUE [None]
